FAERS Safety Report 6580764-1 (Version None)
Quarter: 2010Q1

REPORT INFORMATION
  Report Type: 
  Country: None (occurrence: None)
  Receive Date: 20100212
  Receipt Date: 20100129
  Transmission Date: 20100710
  Serious: No
  Sender: FDA-Public Use
  Company Number: US-ALLERGAN-1001166US

PATIENT
  Age: 83 Year
  Sex: Female

DRUGS (9)
  1. SANCTURA XR [Suspect]
     Indication: PSYCHOMOTOR HYPERACTIVITY
     Dosage: UNK
  2. FOSAMAX [Concomitant]
  3. LOVASTATIN [Concomitant]
  4. ARICEPT [Concomitant]
  5. ASPIRIN [Concomitant]
  6. OSCAL [Concomitant]
  7. VITAMIN E [Concomitant]
  8. VITAMIN C [Concomitant]
  9. MULTI VITAMIN AND MINERAL + SELENIUM [Concomitant]

REACTIONS (1)
  - DIARRHOEA [None]
